FAERS Safety Report 5345331-6 (Version None)
Quarter: 2007Q2

REPORT INFORMATION
  Report Type: 
  Country: None (occurrence: None)
  Receive Date: 20070601
  Receipt Date: 20070601
  Transmission Date: 20071010
  Serious: Yes (Other)
  Sender: FDA-Public Use
  Company Number: None

PATIENT
  Age: 73 Year
  Sex: Female
  Weight: 68.0396 kg

DRUGS (2)
  1. FEMARA [Suspect]
  2. AROMASIN [Suspect]

REACTIONS (2)
  - HAND DEFORMITY [None]
  - MOVEMENT DISORDER [None]
